APPROVED DRUG PRODUCT: CLOBAZAM
Active Ingredient: CLOBAZAM
Strength: 2.5MG/ML
Dosage Form/Route: SUSPENSION;ORAL
Application: A216008 | Product #001
Applicant: ACCORD HEALTHCARE INC
Approved: Sep 6, 2022 | RLD: No | RS: No | Type: DISCN